FAERS Safety Report 6425097-9 (Version None)
Quarter: 2009Q4

REPORT INFORMATION
  Report Type: 
  Country: None (occurrence: None)
  Receive Date: 20091103
  Receipt Date: 20091021
  Transmission Date: 20100525
  Serious: Yes (Other)
  Sender: FDA-Public Use
  Company Number: JP-PFIZER INC-2009277480

PATIENT
  Age: 85 Year
  Sex: Male

DRUGS (1)
  1. ZITHROMAC SR [Suspect]
     Indication: UPPER RESPIRATORY TRACT INFLAMMATION
     Dosage: 2 G, 1X/DAY
     Route: 048
     Dates: start: 20090905, end: 20090905

REACTIONS (1)
  - PSEUDODEMENTIA [None]
